FAERS Safety Report 21813860 (Version 1)
Quarter: 2023Q1

REPORT INFORMATION
  Report Type: Report from Study
  Country: TW (occurrence: TW)
  Receive Date: 20230104
  Receipt Date: 20230104
  Transmission Date: 20230418
  Serious: Yes (Death, Other)
  Sender: FDA-Public Use
  Company Number: TW-Accord-294317

PATIENT
  Age: 64 Year
  Sex: Female

DRUGS (1)
  1. AZACITIDINE [Suspect]
     Active Substance: AZACITIDINE
     Indication: Acute myeloid leukaemia
     Dosage: CUMULATIVE DOSE: 1 CYCLES, 75MG/M2/DAY FOR 7 DAYS EVERY 4 WEEKS

REACTIONS (1)
  - Bronchopulmonary aspergillosis [Fatal]
